FAERS Safety Report 8502284-7 (Version None)
Quarter: 2012Q2

REPORT INFORMATION
  Report Type: 
  Country: None (occurrence: None)
  Receive Date: 20120405
  Receipt Date: 20110315
  Transmission Date: 20120825
  Serious: Yes (Other)
  Sender: FDA-Public Use
  Company Number: PHEH2011US00457

PATIENT
  Sex: Female

DRUGS (2)
  1. RECLAST [Suspect]
  2. FOSAMAX [Suspect]

REACTIONS (7)
  - FEAR [None]
  - FEMUR FRACTURE [None]
  - FALL [None]
  - ASTHENIA [None]
  - INJURY [None]
  - PAIN [None]
  - DECREASED INTEREST [None]
